FAERS Safety Report 4395139-3 (Version None)
Quarter: 2004Q3

REPORT INFORMATION
  Report Type: 
  Country: None (occurrence: None)
  Receive Date: 20040706
  Receipt Date: 20040625
  Transmission Date: 20050211
  Serious: Yes (Disabling)
  Sender: FDA-Public Use
  Company Number: 2004220255CH

PATIENT
  Age: 60 Year
  Sex: Female

DRUGS (2)
  1. XALATAN [Suspect]
     Indication: GLAUCOMA
     Dosage: 2 GTT, BID, OPHTHALMIC
     Route: 047
     Dates: start: 20040602, end: 20040609
  2. XALATAN [Suspect]
     Indication: GLAUCOMA
     Dosage: 2 GTT, BID, OPHTHALMIC
     Route: 047
     Dates: start: 20040611, end: 20040618

REACTIONS (2)
  - CONJUNCTIVITIS [None]
  - EPISCLERITIS [None]
